FAERS Safety Report 14329500 (Version 1)
Quarter: 2017Q4

REPORT INFORMATION
  Report Type: Report from Study
  Country: FR (occurrence: FR)
  Receive Date: 20171227
  Receipt Date: 20171227
  Transmission Date: 20180321
  Serious: Yes (Other)
  Sender: FDA-Public Use
  Company Number: FR-MYLANLABS-2017M1079372

PATIENT
  Age: 27 Week
  Sex: Male

DRUGS (2)
  1. CERNEVIT [Suspect]
     Active Substance: VITAMINS
     Indication: VITAMIN D DEFICIENCY
     Dosage: UNK
     Route: 065
  2. FUROSEMIDE. [Suspect]
     Active Substance: FUROSEMIDE
     Indication: PRODUCT USED FOR UNKNOWN INDICATION
     Dosage: UNK
     Route: 065

REACTIONS (2)
  - Hypercalciuria [Unknown]
  - Nephrocalcinosis [Recovered/Resolved]
